FAERS Safety Report 23545842 (Version 4)
Quarter: 2024Q2

REPORT INFORMATION
  Report Type: Spontaneous
  Country: US (occurrence: US)
  Receive Date: 20240220
  Receipt Date: 20240503
  Transmission Date: 20240716
  Serious: No
  Sender: FDA-Public Use
  Company Number: US-KARYOPHARM-2024KPT000475

PATIENT

DRUGS (17)
  1. XPOVIO [Suspect]
     Active Substance: SELINEXOR
     Indication: Plasma cell myeloma
     Dosage: 80 MG, DAILY ON DAYS 1,3,8,10,15,17,22 AND 24 OF A 28 DAY CYCLE.
     Route: 048
     Dates: start: 20240212, end: 2024
  2. XPOVIO [Suspect]
     Active Substance: SELINEXOR
     Dosage: 80 MG, WEEKLY
     Route: 048
     Dates: start: 2024, end: 202403
  3. XPOVIO [Suspect]
     Active Substance: SELINEXOR
     Dosage: 80 MG, 2X/WEEK
     Route: 048
     Dates: start: 202403, end: 202403
  4. XPOVIO [Suspect]
     Active Substance: SELINEXOR
     Dosage: 80 MG, WEEKLY
     Route: 048
     Dates: start: 2024, end: 2024
  5. ACYCLOVIR [Concomitant]
     Active Substance: ACYCLOVIR
  6. ALLOPURINOL [Concomitant]
     Active Substance: ALLOPURINOL
  7. CLONIDINE [Concomitant]
     Active Substance: CLONIDINE
  8. DEXAMETHASONE [Concomitant]
     Active Substance: DEXAMETHASONE
  9. LASIX [Concomitant]
     Active Substance: FUROSEMIDE
  10. GABAPENTIN [Concomitant]
     Active Substance: GABAPENTIN
  11. NORCO [Concomitant]
     Active Substance: ACETAMINOPHEN\HYDROCODONE BITARTRATE
  12. NORTRIPTYLINE [Concomitant]
     Active Substance: NORTRIPTYLINE
  13. OMEPRAZOLE [Concomitant]
     Active Substance: OMEPRAZOLE
  14. ZOFRAN [Concomitant]
     Active Substance: ONDANSETRON HYDROCHLORIDE
  15. LYRICA [Concomitant]
     Active Substance: PREGABALIN
  16. TRAMADOL [Concomitant]
     Active Substance: TRAMADOL\TRAMADOL HYDROCHLORIDE
  17. POTASSIUM ACETATE [Concomitant]
     Active Substance: POTASSIUM ACETATE

REACTIONS (6)
  - Memory impairment [Unknown]
  - Fatigue [Unknown]
  - Nausea [Unknown]
  - Urinary tract infection [Unknown]
  - Confusional state [Not Recovered/Not Resolved]
  - Product dose omission issue [Not Recovered/Not Resolved]

NARRATIVE: CASE EVENT DATE: 20240101
